FAERS Safety Report 9581091 (Version 1)
Quarter: 2013Q4

REPORT INFORMATION
  Report Type: Report from Study
  Country: ES (occurrence: ES)
  Receive Date: 20131002
  Receipt Date: 20131002
  Transmission Date: 20140711
  Serious: Yes (Hospitalization)
  Sender: FDA-Public Use
  Company Number: ES-PFIZER INC-2013278748

PATIENT
  Age: 87 Year
  Sex: Female

DRUGS (6)
  1. CARDURAN NEO [Suspect]
     Dosage: 8 MG, DAILY
     Route: 048
     Dates: start: 20071216, end: 20100914
  2. INDAPAMIDE [Interacting]
     Dosage: 1.5 MG, DAILY
     Route: 048
     Dates: start: 20071216, end: 20100912
  3. ADIRO [Interacting]
     Dosage: 300 MG, DAILY
     Route: 048
     Dates: start: 20090922, end: 20100914
  4. SILOSTAR [Interacting]
     Dosage: 5 MG, DAILY
     Route: 048
     Dates: start: 20071216, end: 20100912
  5. OMEPRAZOLE [Concomitant]
     Dosage: 20 MG, DAILY
     Route: 048
     Dates: start: 20090922, end: 20100914
  6. TARDYFERON [Concomitant]
     Dosage: 160 MG, DAILY
     Route: 048
     Dates: start: 20100116, end: 20100912

REACTIONS (2)
  - Drug interaction [Recovered/Resolved]
  - Renal failure acute [Recovered/Resolved]
